FAERS Safety Report 21643602 (Version 6)
Quarter: 2023Q1

REPORT INFORMATION
  Report Type: Report from Study
  Country: CN (occurrence: CN)
  Receive Date: 20221125
  Receipt Date: 20230310
  Transmission Date: 20230417
  Serious: Yes (Other)
  Sender: FDA-Public Use
  Company Number: CN-FOSUNKITE-FOSUNKITE-20220601

PATIENT
  Age: 70 Year
  Sex: Male

DRUGS (4)
  1. AXICABTAGENE CILOLEUCEL [Suspect]
     Active Substance: AXICABTAGENE CILOLEUCEL
     Indication: Non-Hodgkin^s lymphoma
     Dosage: 1.3*10^8 CELLS (NUMBER OF CAR-T CELLS)
     Route: 042
     Dates: start: 20221024, end: 20221024
  2. FLUDARABINE PHOSPHATE [Suspect]
     Active Substance: FLUDARABINE PHOSPHATE
     Indication: Lymphodepletion
     Dosage: 50 MG
     Route: 041
     Dates: start: 20221019, end: 20221021
  3. CYCLOPHOSPHAMIDE [Concomitant]
     Active Substance: CYCLOPHOSPHAMIDE
     Indication: Lymphodepletion
     Dosage: 900 MG
     Route: 041
     Dates: start: 20221019, end: 20221021
  4. ZANUBRUTINIB [Concomitant]
     Active Substance: ZANUBRUTINIB
     Indication: Non-Hodgkin^s lymphoma
     Dosage: UNK
     Route: 048
     Dates: start: 20221013

REACTIONS (21)
  - Hypokalaemia [Recovered/Resolved]
  - Renal failure [Not Recovered/Not Resolved]
  - Cytokine release syndrome [Recovered/Resolved]
  - Hypoxia [Recovered/Resolved]
  - White blood cell count decreased [Recovered/Resolved]
  - Neutrophil count decreased [Recovered/Resolved]
  - Lymphocyte count decreased [Recovered/Resolved]
  - Anaemia [Not Recovered/Not Resolved]
  - Platelet count decreased [Not Recovered/Not Resolved]
  - Hypoalbuminaemia [Recovered/Resolved]
  - Blood alkaline phosphatase increased [Recovered/Resolved]
  - Gamma-glutamyltransferase increased [Recovered/Resolved]
  - Hypocalcaemia [Recovered/Resolved]
  - Hypophosphataemia [Recovered/Resolved]
  - Hypomagnesaemia [Not Recovered/Not Resolved]
  - Cytokine increased [Not Recovered/Not Resolved]
  - C-reactive protein increased [Recovered/Resolved]
  - Blood immunoglobulin G decreased [Not Recovered/Not Resolved]
  - Chest discomfort [Recovered/Resolved]
  - Face oedema [Recovered/Resolved]
  - Listless [Recovered/Resolved]

NARRATIVE: CASE EVENT DATE: 20221024
